FAERS Safety Report 16900529 (Version 1)
Quarter: 2019Q4

REPORT INFORMATION
  Report Type: Spontaneous
  Country: US (occurrence: US)
  Receive Date: 20191009
  Receipt Date: 20191009
  Transmission Date: 20200122
  Serious: No
  Sender: FDA-Public Use
  Company Number: US-TEVA-2019-US-1117393

PATIENT
  Age: 29 Year
  Sex: Female

DRUGS (1)
  1. ACETAZOLAMIDE. [Suspect]
     Active Substance: ACETAZOLAMIDE
     Indication: CSF VOLUME INCREASED
     Route: 065

REACTIONS (3)
  - Infection [Unknown]
  - Adverse event [Unknown]
  - Urticaria [Unknown]
